FAERS Safety Report 7742732-3 (Version None)
Quarter: 2011Q3

REPORT INFORMATION
  Report Type: 
  Country: None (occurrence: None)
  Receive Date: 20110912
  Receipt Date: 20110830
  Transmission Date: 20111222
  Serious: Yes (Hospitalization, Other)
  Sender: FDA-Public Use
  Company Number: DK-NOVOPROD-328778

PATIENT
  Sex: Female
  Weight: 96.6 kg

DRUGS (8)
  1. CORODIL                            /00042901/ [Concomitant]
     Indication: HYPERTENSION
  2. AMLODIPIN 1A FARMA [Concomitant]
     Indication: HYPERTENSION
  3. CLOPIDOGREL SULFATE [Concomitant]
     Indication: PROPHYLAXIS
  4. VICTOZA [Suspect]
     Indication: TYPE 1 DIABETES MELLITUS
     Dosage: UNK
     Route: 058
     Dates: start: 20110505
  5. METOPROLOL SUCCINATE [Concomitant]
     Indication: HYPERTENSION
  6. SIMVASTATIN [Concomitant]
     Indication: HYPERCHOLESTEROLAEMIA
  7. METFORMIN HCL [Concomitant]
     Indication: DIABETES MELLITUS
  8. CLOPIDOGREL SULFATE [Concomitant]
     Indication: CEREBROVASCULAR ACCIDENT

REACTIONS (2)
  - CEREBRAL INFARCTION [None]
  - PARESIS CRANIAL NERVE [None]
